FAERS Safety Report 16762130 (Version 2)
Quarter: 2019Q3

REPORT INFORMATION
  Report Type: Spontaneous
  Country: JP (occurrence: JP)
  Receive Date: 20190830
  Receipt Date: 20190926
  Transmission Date: 20191005
  Serious: Yes (Hospitalization)
  Sender: FDA-Public Use
  Company Number: PHJP2019JP003274

PATIENT
  Age: 45 Year
  Sex: Male
  Weight: 69.8 kg

DRUGS (1)
  1. COSENTYX [Suspect]
     Active Substance: SECUKINUMAB
     Indication: PSORIASIS
     Dosage: 300 MG, UNK
     Route: 058
     Dates: start: 20170704, end: 20190304

REACTIONS (12)
  - White blood cell count increased [Unknown]
  - Abdominal pain [Unknown]
  - Erythema [Unknown]
  - Psoriasis [Unknown]
  - Haematochezia [Unknown]
  - C-reactive protein increased [Unknown]
  - Colitis [Recovering/Resolving]
  - Diarrhoea [Unknown]
  - Mucosal ulceration [Unknown]
  - Oedema mucosal [Unknown]
  - Lower gastrointestinal haemorrhage [Unknown]
  - Occult blood [Unknown]

NARRATIVE: CASE EVENT DATE: 201902
